FAERS Safety Report 5530864-X (Version None)
Quarter: 2007Q4

REPORT INFORMATION
  Report Type: 
  Country: None (occurrence: None)
  Receive Date: 20071130
  Receipt Date: 20071127
  Transmission Date: 20080405
  Serious: Yes (Hospitalization)
  Sender: FDA-Public Use
  Company Number: KR-SANOFI-SYNTHELABO-A01200713400

PATIENT
  Sex: Female

DRUGS (4)
  1. ONDANSETRON [Concomitant]
     Dates: start: 20070625
  2. OXALIPLATIN [Suspect]
     Indication: GASTRIC CANCER
     Route: 042
     Dates: start: 20071019, end: 20071019
  3. XELODA [Suspect]
     Route: 048
     Dates: start: 20071019, end: 20071026
  4. ERBITUX [Suspect]
     Route: 042
     Dates: start: 20071019, end: 20071019

REACTIONS (1)
  - CEREBRAL INFARCTION [None]
